FAERS Safety Report 8319051-X (Version None)
Quarter: 2012Q2

REPORT INFORMATION
  Report Type: 
  Country: None (occurrence: None)
  Receive Date: 20120427
  Receipt Date: 20120420
  Transmission Date: 20120825
  Serious: Yes (Hospitalization, Other)
  Sender: FDA-Public Use
  Company Number: US-ACTELION-A-NJ2011-55770

PATIENT

DRUGS (16)
  1. TOPROL-XL [Concomitant]
  2. VITAMIN K TAB [Concomitant]
  3. NEPHROCAPS [Concomitant]
  4. TRACLEER [Suspect]
     Indication: PULMONARY ARTERIAL HYPERTENSION
     Dosage: 125 MG, BID
     Route: 048
     Dates: start: 20100820
  5. SENSIPAR [Concomitant]
  6. SILVER SULFADIAZINE [Concomitant]
  7. TRACLEER [Suspect]
     Dosage: 62.5 MG, BID
     Route: 048
     Dates: start: 20100610, end: 20100819
  8. COUMADIN [Concomitant]
  9. DILTIAZEM [Concomitant]
  10. PROTONIX [Concomitant]
  11. LISINOPRIL [Concomitant]
  12. RENVELA [Concomitant]
  13. LIPITOR [Concomitant]
  14. PERCOCET [Concomitant]
  15. ASPIRIN [Concomitant]
  16. AGGRENOX [Concomitant]

REACTIONS (13)
  - ABDOMINAL PAIN [None]
  - ALANINE AMINOTRANSFERASE INCREASED [None]
  - ARTERIOVENOUS GRAFT SITE INFECTION [None]
  - BLOOD ALKALINE PHOSPHATASE INCREASED [None]
  - ARTERIAL BYPASS OPERATION [None]
  - RENAL FAILURE [None]
  - LIVER FUNCTION TEST ABNORMAL [None]
  - ASPARTATE AMINOTRANSFERASE INCREASED [None]
  - PERITONEAL DIALYSIS [None]
  - BLOOD BILIRUBIN INCREASED [None]
  - POST PROCEDURAL COMPLICATION [None]
  - OEDEMA PERIPHERAL [None]
  - DIARRHOEA [None]
